FAERS Safety Report 24839727 (Version 2)
Quarter: 2025Q1

REPORT INFORMATION
  Report Type: Spontaneous
  Country: CA (occurrence: None)
  Receive Date: 20250114
  Receipt Date: 20250205
  Transmission Date: 20250408
  Serious: Yes (Death)
  Sender: ORION
  Company Number: CA-PFIZER INC-202300296331

PATIENT
  Age: 60 Year
  Sex: Female

DRUGS (3)
  1. METHOTREXATE [Suspect]
     Active Substance: METHOTREXATE
     Indication: Rheumatoid arthritis
     Dates: start: 2003, end: 2025
  2. CELEBREX [Suspect]
     Active Substance: CELECOXIB
     Indication: Pain
     Dates: start: 2003, end: 2025
  3. FOLIC ACID [Concomitant]
     Active Substance: FOLIC ACID
     Indication: Prophylaxis

REACTIONS (2)
  - Pneumonia [Fatal]
  - Drug ineffective [Unknown]
